FAERS Safety Report 8551074-8 (Version None)
Quarter: 2012Q3

REPORT INFORMATION
  Report Type: 
  Country: None (occurrence: None)
  Receive Date: 20120730
  Receipt Date: 20110829
  Transmission Date: 20120928
  Serious: No
  Sender: FDA-Public Use
  Company Number: US-ALLERGAN-1111553US

PATIENT
  Sex: Male

DRUGS (1)
  1. LUMIGAN [Suspect]
     Indication: INTRAOCULAR PRESSURE DECREASED
     Dosage: 1 GTT, QD
     Route: 047
     Dates: end: 20110825

REACTIONS (1)
  - RHINORRHOEA [None]
